APPROVED DRUG PRODUCT: SERAX
Active Ingredient: OXAZEPAM
Strength: 30MG **Federal Register determination that product was not discontinued or withdrawn for safety or effectiveness reasons**
Dosage Form/Route: CAPSULE;ORAL
Application: N015539 | Product #006
Applicant: ALPHARMA US PHARMACEUTICALS DIVISION
Approved: Approved Prior to Jan 1, 1982 | RLD: Yes | RS: No | Type: DISCN